FAERS Safety Report 5852212-8 (Version None)
Quarter: 2008Q3

REPORT INFORMATION
  Report Type: 
  Country: None (occurrence: None)
  Receive Date: 20080821
  Receipt Date: 20080821
  Transmission Date: 20090109
  Serious: Yes (Death)
  Sender: FDA-Public Use
  Company Number: None

PATIENT
  Age: 64 Year
  Sex: Male
  Weight: 83.9154 kg

DRUGS (1)
  1. HEPARIN [Suspect]
     Indication: RENAL DISORDER
     Dates: start: 20071201, end: 20080115

REACTIONS (2)
  - GENERAL PHYSICAL HEALTH DETERIORATION [None]
  - PHARMACEUTICAL PRODUCT COMPLAINT [None]
